FAERS Safety Report 18775252 (Version 1)
Quarter: 2021Q1

REPORT INFORMATION
  Report Type: Report from Study
  Country: GB (occurrence: GB)
  Receive Date: 20210122
  Receipt Date: 20210122
  Transmission Date: 20210419
  Serious: Yes (Other)
  Sender: FDA-Public Use
  Company Number: GB-SAMSUNG BIOEPIS-SB-2021-01306

PATIENT
  Age: 47 Year
  Sex: Female

DRUGS (1)
  1. BENEPALI [Suspect]
     Active Substance: ETANERCEPT
     Indication: AXIAL SPONDYLOARTHRITIS
     Route: 058
     Dates: start: 20201109

REACTIONS (1)
  - COVID-19 [Unknown]
